FAERS Safety Report 26186201 (Version 1)
Quarter: 2025Q4

REPORT INFORMATION
  Report Type: Spontaneous
  Country: US (occurrence: None)
  Receive Date: 20251219
  Receipt Date: 20251219
  Transmission Date: 20260119
  Serious: Yes (Hospitalization)
  Sender: FDA-CTU
  Company Number: None

PATIENT
  Age: 79 Year
  Sex: Female

DRUGS (2)
  1. METHOTREXATE [Suspect]
     Active Substance: METHOTREXATE
     Dosage: FREQUENCY : Q4WKS
  2. CIMZIA [Suspect]
     Active Substance: CERTOLIZUMAB PEGOL

REACTIONS (3)
  - Fibromyalgia [None]
  - Rheumatoid arthritis [None]
  - Therapy interrupted [None]
